FAERS Safety Report 23407872 (Version 1)
Quarter: 2024Q1

REPORT INFORMATION
  Report Type: Spontaneous
  Country: US (occurrence: US)
  Receive Date: 20240117
  Receipt Date: 20240117
  Transmission Date: 20240409
  Serious: Yes (Other)
  Sender: FDA-Public Use
  Company Number: US-ALEMBIC PHARMACUETICALS LIMITED-2024SCAL000001

PATIENT

DRUGS (2)
  1. CELECOXIB [Suspect]
     Active Substance: CELECOXIB
     Indication: Product used for unknown indication
     Dosage: 100 MILLIGRAM, BID
     Route: 065
     Dates: start: 20231222
  2. OZEMPIC [Suspect]
     Active Substance: SEMAGLUTIDE
     Indication: Product used for unknown indication
     Dosage: 100 MILLIGRAM, WEEKLY
     Route: 065

REACTIONS (5)
  - Angle closure glaucoma [Unknown]
  - Swelling of eyelid [Unknown]
  - Eye pain [Unknown]
  - Conjunctivitis [Unknown]
  - Vision blurred [Unknown]
